FAERS Safety Report 4980705-4 (Version None)
Quarter: 2006Q2

REPORT INFORMATION
  Report Type: 
  Country: None (occurrence: None)
  Receive Date: 20060418
  Receipt Date: 20060323
  Transmission Date: 20061013
  Serious: Yes (Other)
  Sender: FDA-Public Use
  Company Number: 200611972BWH

PATIENT
  Age: 66 Year
  Sex: Male
  Weight: 242 kg

DRUGS (14)
  1. NEXAVAR [Suspect]
     Indication: RENAL CELL CARCINOMA STAGE UNSPECIFIED
     Dosage: SEE IMAGE
     Route: 048
     Dates: start: 20060124, end: 20060227
  2. NEXAVAR [Suspect]
     Indication: RENAL CELL CARCINOMA STAGE UNSPECIFIED
     Dosage: SEE IMAGE
     Route: 048
     Dates: start: 20060321
  3. METOPROLOL SUCCINATE [Concomitant]
  4. CALCITIPROL [Concomitant]
  5. PLAVIX [Concomitant]
  6. LOVASTATIN [Concomitant]
  7. INSULIN [Concomitant]
  8. LASIX [Concomitant]
  9. LISINOPRIL [Concomitant]
  10. NITROSTAT [Concomitant]
  11. NIFEDIPINE [Concomitant]
  12. IRON [Concomitant]
  13. TESTOSTERONE [Concomitant]
  14. LANTUS [Concomitant]

REACTIONS (11)
  - BLOOD GLUCOSE DECREASED [None]
  - DIARRHOEA [None]
  - DRY MOUTH [None]
  - EYE IRRITATION [None]
  - FATIGUE [None]
  - HYPERGLYCAEMIA [None]
  - MUSCLE SPASMS [None]
  - ORAL PAIN [None]
  - RASH [None]
  - RASH PAPULAR [None]
  - STOMATITIS [None]
